FAERS Safety Report 19506234 (Version 1)
Quarter: 2021Q3

REPORT INFORMATION
  Report Type: Spontaneous
  Country: US (occurrence: US)
  Receive Date: 20210707
  Receipt Date: 20210707
  Transmission Date: 20211014
  Serious: Yes (Hospitalization)
  Sender: FDA-Public Use
  Company Number: None

PATIENT
  Age: 27 Year
  Sex: Male

DRUGS (8)
  1. OPSUMIT [Suspect]
     Active Substance: MACITENTAN
     Indication: PULMONARY ARTERIAL HYPERTENSION
     Route: 048
     Dates: start: 20210203
  2. K?TAB [Concomitant]
     Active Substance: POTASSIUM CHLORIDE
  3. GENTEAL PM OINT [Concomitant]
  4. MAGNESIUM OXIDE. [Concomitant]
     Active Substance: MAGNESIUM OXIDE
  5. SILDENAFIL. [Concomitant]
     Active Substance: SILDENAFIL
  6. ALLOPURINOL. [Concomitant]
     Active Substance: ALLOPURINOL
  7. ASPIRIN. [Concomitant]
     Active Substance: ASPIRIN
  8. BUMETANIDE. [Concomitant]
     Active Substance: BUMETANIDE

REACTIONS (2)
  - Incision site haemorrhage [None]
  - Skin abrasion [None]

NARRATIVE: CASE EVENT DATE: 20210622
